FAERS Safety Report 8518950-3 (Version None)
Quarter: 2012Q3

REPORT INFORMATION
  Report Type: 
  Country: None (occurrence: None)
  Receive Date: 20120718
  Receipt Date: 20120712
  Transmission Date: 20120928
  Serious: Yes (Other)
  Sender: FDA-Public Use
  Company Number: JP-GLAXOSMITHKLINE-B0803928A

PATIENT
  Sex: Female
  Weight: 61 kg

DRUGS (7)
  1. HERCEPTIN [Suspect]
     Indication: BREAST CANCER
     Dosage: 8MGK THREE TIMES PER WEEK
     Route: 042
     Dates: start: 20111220, end: 20111220
  2. EPIRUBICIN HYDROCHLORIDE [Suspect]
     Indication: ADJUVANT THERAPY
     Dosage: 90MG THREE TIMES PER WEEK
     Route: 042
     Dates: start: 20080422, end: 20080624
  3. DOCETAXEL [Suspect]
     Indication: ADJUVANT THERAPY
     Dosage: 70MG THREE TIMES PER WEEK
     Route: 042
     Dates: start: 20080722, end: 20080925
  4. CYCLOPHOSPHAMIDE [Suspect]
     Indication: ADJUVANT THERAPY
     Dosage: 600MG THREE TIMES PER WEEK
     Route: 042
     Dates: start: 20080422, end: 20080624
  5. TYKERB [Suspect]
     Indication: BREAST CANCER
     Dosage: 1500MG PER DAY
     Route: 048
     Dates: start: 20081216, end: 20091214
  6. TAMOXIFEN CITRATE [Suspect]
     Indication: BREAST CANCER
     Dosage: 20MG PER DAY
     Route: 048
     Dates: start: 20090630, end: 20120319
  7. HERCEPTIN [Suspect]
     Dosage: 6MGK THREE TIMES PER WEEK
     Route: 042
     Dates: start: 20120110

REACTIONS (1)
  - GASTRIC CANCER [None]
